APPROVED DRUG PRODUCT: TRIPROLIDINE HYDROCHLORIDE
Active Ingredient: TRIPROLIDINE HYDROCHLORIDE
Strength: 1.25MG/5ML
Dosage Form/Route: SYRUP;ORAL
Application: A088735 | Product #001
Applicant: HALSEY DRUG CO INC
Approved: Jan 17, 1985 | RLD: No | RS: No | Type: DISCN